FAERS Safety Report 7189543-8 (Version None)
Quarter: 2010Q4

REPORT INFORMATION
  Report Type: 
  Country: None (occurrence: None)
  Receive Date: 20101223
  Receipt Date: 20101215
  Transmission Date: 20110411
  Serious: Yes (Hospitalization)
  Sender: FDA-Public Use
  Company Number: US-BIOGENIDEC-2010BI044162

PATIENT
  Age: 35 Year
  Sex: Male

DRUGS (2)
  1. AVONEX [Suspect]
     Indication: MULTIPLE SCLEROSIS
     Route: 030
     Dates: start: 20100326
  2. AVONEX [Suspect]
     Route: 030
     Dates: start: 20051118

REACTIONS (3)
  - ALCOHOL INTERACTION [None]
  - COMA [None]
  - INFECTION [None]
